FAERS Safety Report 5450046-X (Version None)
Quarter: 2007Q3

REPORT INFORMATION
  Report Type: 
  Country: None (occurrence: None)
  Receive Date: 20070912
  Receipt Date: 20070904
  Transmission Date: 20080115
  Serious: Yes (Death)
  Sender: FDA-Public Use
  Company Number: US-GENENTECH, INC.-247117

PATIENT
  Sex: Male
  Weight: 84 kg

DRUGS (1)
  1. BEVACIZUMAB [Suspect]
     Indication: SMALL CELL LUNG CANCER STAGE UNSPECIFIED
     Dosage: 1260 MG, Q3W
     Route: 042
     Dates: start: 20070808

REACTIONS (1)
  - DEATH [None]
